FAERS Safety Report 17410549 (Version 4)
Quarter: 2020Q1

REPORT INFORMATION
  Report Type: Spontaneous
  Country: US (occurrence: US)
  Receive Date: 20200212
  Receipt Date: 20200324
  Transmission Date: 20200409
  Serious: Yes (Hospitalization)
  Sender: FDA-Public Use
  Company Number: US-ACTELION-A-US2020-201642

PATIENT
  Age: 35 Year
  Sex: Female
  Weight: 52.15 kg

DRUGS (13)
  1. LASIX [Concomitant]
     Active Substance: FUROSEMIDE
     Dosage: UNK
  2. VELETRI [Suspect]
     Active Substance: EPOPROSTENOL
     Dosage: 18 NG/KG, PER MIN
     Route: 042
  3. VELETRI [Suspect]
     Active Substance: EPOPROSTENOL
     Dosage: 21 NG/KG, PER MIN
     Route: 042
  4. UPTRAVI [Suspect]
     Active Substance: SELEXIPAG
     Indication: PULMONARY ARTERIAL HYPERTENSION
     Dosage: UNK
     Route: 048
  5. PEPCID [Concomitant]
     Active Substance: FAMOTIDINE
     Dosage: UNK
  6. VELETRI [Suspect]
     Active Substance: EPOPROSTENOL
     Indication: PULMONARY ARTERIAL HYPERTENSION
     Dosage: 28 NG/KG, PER MIN
     Route: 042
  7. COENZYME [Concomitant]
     Active Substance: UBIDECARENONE
  8. MAGNESIUM [Concomitant]
     Active Substance: MAGNESIUM
  9. PRENATAL VITAMINS [Concomitant]
     Active Substance: VITAMINS
  10. VELETRI [Suspect]
     Active Substance: EPOPROSTENOL
     Dosage: 26 NG/KG, PER MIN
     Route: 042
  11. BILBERRY [Concomitant]
     Active Substance: BILBERRY
  12. GARLIC. [Concomitant]
     Active Substance: GARLIC
  13. SILDENAFIL CITRATE. [Concomitant]
     Active Substance: SILDENAFIL CITRATE
     Dosage: UNK

REACTIONS (14)
  - Cardiac disorder [Unknown]
  - Palpitations [Recovered/Resolved]
  - Application site irritation [Unknown]
  - Epistaxis [Unknown]
  - Pulmonary arterial hypertension [Recovered/Resolved]
  - Condition aggravated [Recovered/Resolved]
  - Cough [Recovered/Resolved]
  - Diarrhoea [Unknown]
  - Dyspnoea [Unknown]
  - Premature labour [Unknown]
  - Exposure during pregnancy [Unknown]
  - Complication of pregnancy [Unknown]
  - Pain in jaw [Unknown]
  - Tachycardia [Unknown]

NARRATIVE: CASE EVENT DATE: 20200131
